FAERS Safety Report 9154840 (Version 1)
Quarter: 2013Q1

REPORT INFORMATION
  Report Type: Spontaneous
  Country: GB (occurrence: None)
  Receive Date: 20130208
  Receipt Date: 20130208
  Transmission Date: 20140127
  Serious: Yes (Life-Threatening, Hospitalization, Other)
  Sender: FDA-Public Use
  Company Number: AUR_APL-2013-01225

PATIENT
  Age: 30 Year
  Sex: Male

DRUGS (7)
  1. LAMOTRIGINE (LAMOTRIGINE) [Suspect]
     Indication: GASTRIC DISORDER
     Dosage: 100 MG (50 MG, 2 IN 1 D), ORAL
     Route: 048
  2. LANSOPRAZOLE (LANSOPRAZOLE) [Suspect]
     Indication: PEPTIC ULCER
     Route: 048
  3. CLOZARIL (CLOZAPINE) [Suspect]
     Indication: SCHIZOPHRENIA
     Route: 048
  4. HYOSCINE [Suspect]
     Indication: SALIVARY HYPERSECRETION
     Dosage: 90 MCG (30 MCG, 3 IN 1 D), ORAL
     Route: 048
  5. INSULIN (INSULIN) [Suspect]
     Indication: DIABETES MELLITUS
     Dosage: 28 UL (14 UL, 2 IN 1 D), SUBCUTANEOUS
     Route: 058
  6. CLARITHROMYCIN (CLARITHROMYCIN) [Concomitant]
  7. PARACETAMOL (PARACETAMOL) [Concomitant]

REACTIONS (10)
  - Type 1 diabetes mellitus [None]
  - Diarrhoea [None]
  - Hypophagia [None]
  - Diabetic ketoacidosis [None]
  - Pneumonia [None]
  - Sepsis [None]
  - Chest discomfort [None]
  - General physical health deterioration [None]
  - Neutrophil count increased [None]
  - White blood cell count increased [None]
